FAERS Safety Report 25930035 (Version 1)
Quarter: 2025Q4

REPORT INFORMATION
  Report Type: Spontaneous
  Country: US (occurrence: None)
  Receive Date: 20251015
  Receipt Date: 20251015
  Transmission Date: 20260117
  Serious: Yes (Life-Threatening, Hospitalization, Disabling)
  Sender: FDA-CTU
  Company Number: None

PATIENT
  Age: 17 Year
  Sex: Male
  Weight: 76.5 kg

DRUGS (12)
  1. CLARAVIS [Suspect]
     Active Substance: ISOTRETINOIN
     Indication: Acne
     Dosage: OTHER QUANTITY : 30 CAPSULE(S);?FREQUENCY : TWICE A DAY;?
     Route: 048
     Dates: start: 20240301, end: 20250118
  2. INSULIN NOS [Concomitant]
     Active Substance: INSULIN NOS
  3. INSULIN LISPRO [Concomitant]
     Active Substance: INSULIN LISPRO
  4. dexcom g7 [Concomitant]
  5. Omni pod [Concomitant]
  6. BAQSIMI [Concomitant]
     Active Substance: GLUCAGON
  7. glucometor [Concomitant]
  8. strips [Concomitant]
  9. DEVICE [Concomitant]
     Active Substance: DEVICE
  10. keton strips [Concomitant]
  11. glucose tabs [Concomitant]
  12. LANTUS [Concomitant]
     Active Substance: INSULIN GLARGINE

REACTIONS (6)
  - Thirst [None]
  - Pollakiuria [None]
  - Hepatic enzyme abnormal [None]
  - Therapy cessation [None]
  - Diabetic ketoacidosis [None]
  - Type 1 diabetes mellitus [None]

NARRATIVE: CASE EVENT DATE: 20250213
